FAERS Safety Report 9861724 (Version 2)
Quarter: 2014Q1

REPORT INFORMATION
  Report Type: Spontaneous
  Country: US (occurrence: US)
  Receive Date: 20140203
  Receipt Date: 20140208
  Transmission Date: 20141002
  Serious: Yes (Death, Hospitalization)
  Sender: FDA-Public Use
  Company Number: US-ROCHE-1341693

PATIENT
  Age: 59 Year
  Sex: Female

DRUGS (1)
  1. CELLCEPT [Suspect]
     Indication: SYSTEMIC LUPUS ERYTHEMATOSUS
     Dosage: 3-4 YEARS
     Route: 065

REACTIONS (5)
  - Brain oedema [Fatal]
  - Craniocerebral injury [Fatal]
  - Cerebrovascular accident [Fatal]
  - Aneurysm [Fatal]
  - Renal disorder [Fatal]
